FAERS Safety Report 25279647 (Version 1)
Quarter: 2025Q2

REPORT INFORMATION
  Report Type: Spontaneous
  Country: US (occurrence: US)
  Receive Date: 20250507
  Receipt Date: 20250507
  Transmission Date: 20250717
  Serious: No
  Sender: AMGEN
  Company Number: US-AMGEN-USASP2025085626

PATIENT
  Age: 22 Week
  Sex: Female
  Weight: 0.433 kg

DRUGS (4)
  1. INFLIXIMAB [Suspect]
     Active Substance: INFLIXIMAB
     Indication: Capillary leak syndrome
     Route: 065
  2. AMINOPHYLLINE [Concomitant]
     Active Substance: AMINOPHYLLINE
     Indication: Capillary leak syndrome
  3. Immunoglobulin [Concomitant]
     Indication: Capillary leak syndrome
     Route: 040
  4. METHYLPREDNISOLONE [Concomitant]
     Active Substance: METHYLPREDNISOLONE
     Indication: Capillary leak syndrome

REACTIONS (2)
  - Staphylococcal infection [Unknown]
  - Off label use [Unknown]
